FAERS Safety Report 9117168 (Version 1)
Quarter: 2013Q1

REPORT INFORMATION
  Report Type: Spontaneous
  Country: IN (occurrence: IN)
  Receive Date: 20130208
  Receipt Date: 20130208
  Transmission Date: 20140127
  Serious: Yes (Hospitalization, Other)
  Sender: FDA-Public Use
  Company Number: IN-ELI_LILLY_AND_COMPANY-IN201301010577

PATIENT
  Age: 82 Year
  Sex: Male

DRUGS (3)
  1. TERIPARATIDE [Suspect]
     Indication: OSTEOPOROSIS
     Dosage: 20 UG, QD
  2. CALCIUM CARBONATE [Concomitant]
     Dosage: UNK UNK, TID
  3. CHOLECALCIFEROL [Concomitant]
     Dosage: 60000 U, MONTHLY (1/M)

REACTIONS (5)
  - Milk-alkali syndrome [Recovered/Resolved]
  - Encephalopathy [Recovered/Resolved]
  - Renal failure acute [None]
  - Incorrect dose administered [None]
  - Hypoxic-ischaemic encephalopathy [None]
